FAERS Safety Report 9342836 (Version 3)
Quarter: 2013Q4

REPORT INFORMATION
  Report Type: Spontaneous
  Country: US (occurrence: US)
  Receive Date: 20130611
  Receipt Date: 20131211
  Transmission Date: 20140711
  Serious: Yes (Hospitalization)
  Sender: FDA-Public Use
  Company Number: US-B.I. PHARMACEUTICALS,INC./RIDGEFIELD-2013-BI-16121BP

PATIENT
  Age: 78 Year
  Sex: Male
  Weight: 82 kg

DRUGS (9)
  1. PRADAXA [Suspect]
     Indication: ATRIAL FLUTTER
     Dosage: 300 MG
     Route: 048
     Dates: start: 20110215, end: 20120222
  2. LIPITOR [Concomitant]
     Dosage: 80 MG
     Dates: start: 20070602
  3. LOPRESSOR [Concomitant]
     Dosage: 50 MG
     Dates: start: 20101101
  4. VITAMIN C [Concomitant]
  5. MULTIVITAMINS [Concomitant]
  6. CIALIS [Concomitant]
     Dates: start: 20100714
  7. AMIODARONE HYDROCHLORIDE [Concomitant]
     Dosage: 200 MG
     Dates: start: 20110215
  8. ATORVASTATIN CALCIUM [Concomitant]
     Dates: start: 20110531
  9. CHOLESTEROL DEFENSE - BETA STITOSTEROL [Concomitant]

REACTIONS (1)
  - Cerebral haemorrhage [Unknown]
